FAERS Safety Report 5599965-4 (Version None)
Quarter: 2008Q1

REPORT INFORMATION
  Report Type: 
  Country: None (occurrence: None)
  Receive Date: 20080123
  Receipt Date: 20080115
  Transmission Date: 20080703
  Serious: Yes (Hospitalization)
  Sender: FDA-Public Use
  Company Number: JP-ASTRAZENECA-2007AP07917

PATIENT
  Age: 72 Year
  Sex: Female
  Weight: 55 kg

DRUGS (4)
  1. CRESTOR [Suspect]
     Indication: HYPERCHOLESTEROLAEMIA
     Route: 048
     Dates: start: 20070614, end: 20071123
  2. WARFARIN SODIUM [Interacting]
     Indication: CEREBRAL INFARCTION
     Dosage: FREQUENCY UNKNOWN
     Route: 048
     Dates: end: 20070817
  3. WARFARIN SODIUM [Interacting]
     Dosage: FREQUENCY UNKNOWN
     Route: 048
     Dates: start: 20070818, end: 20071030
  4. WARFARIN SODIUM [Interacting]
     Dosage: FREQUENCY UNKNOWN
     Route: 048
     Dates: start: 20071031, end: 20071130

REACTIONS (2)
  - INTERNATIONAL NORMALISED RATIO FLUCTUATION [None]
  - PNEUMONIA [None]
